FAERS Safety Report 23020382 (Version 1)
Quarter: 2023Q4

REPORT INFORMATION
  Report Type: Spontaneous
  Country: US (occurrence: None)
  Receive Date: 20231002
  Receipt Date: 20231002
  Transmission Date: 20240110
  Serious: No
  Sender: FDA-Public Use
  Company Number: None

PATIENT
  Age: 65 Year
  Sex: Female
  Weight: 54 kg

DRUGS (3)
  1. PAXLOVID [Suspect]
     Active Substance: NIRMATRELVIR\RITONAVIR
     Indication: COVID-19
     Dosage: OTHER QUANTITY : 30 TABLET(S);?FREQUENCY : TWICE A DAY;?
     Route: 048
     Dates: start: 20230918, end: 20230922
  2. ATORVASTATIN [Concomitant]
     Active Substance: ATORVASTATIN
  3. CETIRIZINE [Concomitant]
     Active Substance: CETIRIZINE HYDROCHLORIDE

REACTIONS (5)
  - COVID-19 [None]
  - SARS-CoV-2 test positive [None]
  - Abdominal pain upper [None]
  - Foreign body in throat [None]
  - Epigastric discomfort [None]

NARRATIVE: CASE EVENT DATE: 20230918
